FAERS Safety Report 9005905 (Version 1)
Quarter: 2013Q1

REPORT INFORMATION
  Report Type: Spontaneous
  Country: US (occurrence: US)
  Receive Date: 20130109
  Receipt Date: 20130109
  Transmission Date: 20140127
  Serious: No
  Sender: FDA-Public Use
  Company Number: US-ASTRAZENECA-2012SE92690

PATIENT
  Age: 62 Year
  Sex: Female
  Weight: 44.5 kg

DRUGS (5)
  1. NEXIUM [Suspect]
     Indication: GASTROOESOPHAGEAL REFLUX DISEASE
     Route: 048
  2. INSULIN [Concomitant]
     Indication: DIABETES MELLITUS
  3. HYDROCHLORATHIAZIDE [Concomitant]
     Indication: BLOOD PRESSURE ABNORMAL
  4. HUMIRA [Concomitant]
     Indication: RHEUMATOID ARTHRITIS
  5. PREDNISONE [Concomitant]

REACTIONS (1)
  - Gastric disorder [Not Recovered/Not Resolved]
